FAERS Safety Report 4331686-8 (Version None)
Quarter: 2004Q2

REPORT INFORMATION
  Report Type: 
  Country: None (occurrence: None)
  Receive Date: 20040401
  Receipt Date: 20040401
  Transmission Date: 20050107
  Serious: No
  Sender: FDA-Public Use
  Company Number: None

PATIENT
  Age: 36 Year
  Sex: Female

DRUGS (1)
  1. KARIVA [Suspect]
     Indication: ORAL CONTRACEPTION
     Dosage: 1 QD
     Dates: start: 20040217

REACTIONS (4)
  - MENSTRUATION IRREGULAR [None]
  - NAUSEA [None]
  - PHARMACEUTICAL PRODUCT COMPLAINT [None]
  - VOMITING [None]
